FAERS Safety Report 12901769 (Version 2)
Quarter: 2017Q1

REPORT INFORMATION
  Report Type: Spontaneous
  Country: FR (occurrence: FR)
  Receive Date: 20161102
  Receipt Date: 20170131
  Transmission Date: 20170428
  Serious: Yes (Hospitalization, Other)
  Sender: FDA-Public Use
  Company Number: FR-AMGEN-FRASP2016148321

PATIENT
  Age: 61 Year
  Sex: Female
  Weight: 54 kg

DRUGS (1)
  1. PROLIA [Suspect]
     Active Substance: DENOSUMAB
     Indication: OSTEOPOROSIS
     Dosage: UNK
     Route: 058
     Dates: start: 201505

REACTIONS (6)
  - Loss of consciousness [Unknown]
  - Malaise [Unknown]
  - Blood pressure decreased [Unknown]
  - Confusional state [Unknown]
  - Generalised tonic-clonic seizure [Unknown]
  - Memory impairment [Unknown]

NARRATIVE: CASE EVENT DATE: 201604
